FAERS Safety Report 19982483 (Version 1)
Quarter: 2021Q4

REPORT INFORMATION
  Report Type: Other
  Country: GB (occurrence: GB)
  Receive Date: 20211022
  Receipt Date: 20211022
  Transmission Date: 20220303
  Serious: Yes (Death)
  Sender: FDA-Public Use
  Company Number: GB-ROCHE-2940230

PATIENT
  Age: 46 Year
  Sex: Female

DRUGS (10)
  1. RITUXIMAB [Suspect]
     Active Substance: RITUXIMAB
     Indication: Myelodysplastic syndrome
     Route: 065
  2. MYCOPHENOLATE MOFETIL [Suspect]
     Active Substance: MYCOPHENOLATE MOFETIL
     Indication: Myelodysplastic syndrome
     Route: 065
  3. CYCLOSPORINE [Suspect]
     Active Substance: CYCLOSPORINE
     Indication: Myelodysplastic syndrome
     Route: 065
  4. AZATHIOPRINE [Suspect]
     Active Substance: AZATHIOPRINE
     Indication: Myelodysplastic syndrome
     Route: 065
  5. DAPSONE [Suspect]
     Active Substance: DAPSONE
     Indication: Myelodysplastic syndrome
     Route: 065
  6. SULFAMETHOXYPYRIDAZINE [Suspect]
     Active Substance: SULFAMETHOXYPYRIDAZINE
     Indication: Myelodysplastic syndrome
     Route: 065
  7. RAPAMYCIN [Suspect]
     Active Substance: SIROLIMUS
     Indication: Myelodysplastic syndrome
     Route: 065
  8. INFLIXIMAB [Suspect]
     Active Substance: INFLIXIMAB
     Indication: Myelodysplastic syndrome
     Route: 065
  9. AZACITIDINE [Suspect]
     Active Substance: AZACITIDINE
     Indication: Myelodysplastic syndrome
     Route: 065
  10. PREDNISOLONE [Concomitant]
     Active Substance: PREDNISOLONE
     Dosage: 30-50 MG DAILY

REACTIONS (2)
  - Disease progression [Fatal]
  - Drug ineffective [Unknown]
